FAERS Safety Report 13646712 (Version 1)
Quarter: 2017Q2

REPORT INFORMATION
  Report Type: Spontaneous
  Country: US (occurrence: US)
  Receive Date: 20170612
  Receipt Date: 20170612
  Transmission Date: 20170830
  Serious: No
  Sender: FDA-Public Use
  Company Number: None

PATIENT
  Sex: Female

DRUGS (1)
  1. AFINITOR [Suspect]
     Active Substance: EVEROLIMUS
     Dosage: 2.5 MG EVERY 3 DAYS PO
     Route: 048
     Dates: start: 20170511, end: 20170608

REACTIONS (2)
  - Therapy cessation [None]
  - Oxygen saturation decreased [None]
